FAERS Safety Report 12812659 (Version 2)
Quarter: 2016Q4

REPORT INFORMATION
  Report Type: Spontaneous
  Country: AR (occurrence: AR)
  Receive Date: 20161005
  Receipt Date: 20161024
  Transmission Date: 20170207
  Serious: Yes (Hospitalization, Other)
  Sender: FDA-Public Use
  Company Number: AR-PFIZER INC-2016459911

PATIENT
  Age: 65 Year
  Sex: Female

DRUGS (1)
  1. IBRANCE [Suspect]
     Active Substance: PALBOCICLIB
     Indication: BREAST CANCER METASTATIC
     Dosage: 125 MG, CYCLIC (3/1 SCHEME)
     Dates: start: 20160606

REACTIONS (2)
  - Hip fracture [Not Recovered/Not Resolved]
  - Tumour marker increased [Not Recovered/Not Resolved]

NARRATIVE: CASE EVENT DATE: 201608
